FAERS Safety Report 5208644-4 (Version None)
Quarter: 2007Q1

REPORT INFORMATION
  Report Type: 
  Country: None (occurrence: None)
  Receive Date: 20070116
  Receipt Date: 20061222
  Transmission Date: 20070707
  Serious: Yes (Death, Life-Threatening, Hospitalization, Disabling)
  Sender: FDA-Public Use
  Company Number: PHHO2006ES09577

PATIENT
  Age: 53 Year
  Sex: Male
  Weight: 51 kg

DRUGS (1)
  1. GLEEVEC [Suspect]
     Indication: CHRONIC MYELOID LEUKAEMIA
     Dosage: 400MG EVERY 12 HOURS
     Route: 048
     Dates: start: 20060612

REACTIONS (10)
  - ANAEMIA [None]
  - BLAST CELLS PRESENT [None]
  - BONE PAIN [None]
  - DRUG INEFFECTIVE [None]
  - FATIGUE [None]
  - GINGIVAL BLEEDING [None]
  - LEUKOCYTOSIS [None]
  - MALIGNANT NEOPLASM PROGRESSION [None]
  - RESPIRATORY DISTRESS [None]
  - THROMBOCYTHAEMIA [None]
